FAERS Safety Report 4735209-0 (Version None)
Quarter: 2005Q3

REPORT INFORMATION
  Report Type: 
  Country: None (occurrence: None)
  Receive Date: 20050804
  Receipt Date: 20050721
  Transmission Date: 20060218
  Serious: Yes (Other)
  Sender: FDA-Public Use
  Company Number: 2005062885

PATIENT
  Sex: Female

DRUGS (1)
  1. BEXTRA [Suspect]
     Indication: ILL-DEFINED DISORDER

REACTIONS (4)
  - FACIAL PALSY [None]
  - HERPES ZOSTER [None]
  - LAGOPHTHALMOS [None]
  - TRANSIENT ISCHAEMIC ATTACK [None]
